FAERS Safety Report 9571091 (Version 2)
Quarter: 2013Q4

REPORT INFORMATION
  Report Type: Report from Study
  Country: US (occurrence: US)
  Receive Date: 20131001
  Receipt Date: 20131119
  Transmission Date: 20140711
  Serious: No
  Sender: FDA-Public Use
  Company Number: US-VERTEX PHARMACEUTICALS INC-2013-010041

PATIENT
  Sex: Male

DRUGS (5)
  1. VX-950 (TELAPREVIR) [Suspect]
     Indication: HEPATITIS C
     Dosage: UNK
     Route: 048
     Dates: start: 20130513, end: 20130730
  2. RIBAVIRIN [Suspect]
     Indication: HEPATITIS C
     Dosage: UNK
     Dates: start: 20130513
  3. PEGASYS [Suspect]
     Indication: HEPATITIS C
     Dosage: UNK
     Dates: start: 20130513
  4. ANTIDEPRESSANTS [Concomitant]
     Indication: DEPRESSION
  5. ANTIDEPRESSANTS [Concomitant]
     Indication: MOOD SWINGS

REACTIONS (2)
  - Mood swings [Recovered/Resolved]
  - Fatigue [Not Recovered/Not Resolved]
